FAERS Safety Report 19263448 (Version 6)
Quarter: 2022Q1

REPORT INFORMATION
  Report Type: Spontaneous
  Country: US (occurrence: None)
  Receive Date: 20210517
  Receipt Date: 20220225
  Transmission Date: 20220423
  Serious: Yes (Other)
  Sender: FDA-Public Use
  Company Number: US-ROCHE-2826755

PATIENT
  Sex: Female

DRUGS (22)
  1. TUKYSA [Suspect]
     Active Substance: TUCATINIB
     Indication: Breast cancer female
     Route: 048
     Dates: start: 20201231
  2. TUKYSA [Suspect]
     Active Substance: TUCATINIB
     Route: 048
     Dates: start: 20210210
  3. TUKYSA [Suspect]
     Active Substance: TUCATINIB
     Route: 048
     Dates: start: 20201208
  4. XELODA [Suspect]
     Active Substance: CAPECITABINE
     Indication: Product used for unknown indication
     Dosage: BID ON 2 WEEKS ON, ONE WEEK
     Route: 048
     Dates: start: 20201212
  5. HERCEPTIN [Suspect]
     Active Substance: TRASTUZUMAB
     Indication: Product used for unknown indication
     Dosage: 6 MG/KG AFTER 8 MG/KG
     Route: 041
     Dates: start: 20201230
  6. PERJETA [Suspect]
     Active Substance: PERTUZUMAB
     Indication: Product used for unknown indication
     Route: 065
  7. XELODA [Concomitant]
     Active Substance: CAPECITABINE
     Dosage: 2 TABLET TWICE A DAILY FOR 7 DAYS ON FOLLOWED BY 7 DAYS OFF
     Route: 048
     Dates: start: 20201208
  8. DULOXETINE HYDROCHLORIDE [Concomitant]
     Active Substance: DULOXETINE HYDROCHLORIDE
     Dosage: 1 CAPSULE NIGHTLY
     Route: 048
     Dates: start: 20190612
  9. FUROSEMIDE [Concomitant]
     Active Substance: FUROSEMIDE
     Indication: Peripheral swelling
     Route: 048
     Dates: start: 20200602
  10. LACTULOSE [Concomitant]
     Active Substance: LACTULOSE
     Route: 048
     Dates: start: 20200413
  11. LORAZEPAM [Concomitant]
     Active Substance: LORAZEPAM
     Indication: Insomnia
     Route: 048
     Dates: start: 20151208
  12. METOPROLOL SUCCINATE [Concomitant]
     Active Substance: METOPROLOL SUCCINATE
     Route: 048
     Dates: start: 20161202
  13. NITROFURANTOIN MACROCRYSTALS [Concomitant]
     Active Substance: NITROFURANTOIN
     Route: 048
     Dates: start: 20200810
  14. NYSTATIN [Concomitant]
     Active Substance: NYSTATIN
     Dates: start: 20190211
  15. ONDANSETRON HYDROCHLORIDE [Concomitant]
     Active Substance: ONDANSETRON HYDROCHLORIDE
     Route: 048
     Dates: start: 20190109
  16. PANTOPRAZOLE SODIUM [Concomitant]
     Active Substance: PANTOPRAZOLE SODIUM
     Route: 048
     Dates: start: 20150119
  17. POTASSIUM CHLORIDE [Concomitant]
     Active Substance: POTASSIUM CHLORIDE
     Route: 048
     Dates: start: 20191120
  18. PREDNISONE [Concomitant]
     Active Substance: PREDNISONE
     Route: 048
     Dates: start: 20140514
  19. PROCHLORPERAZINE MALEATE [Concomitant]
     Active Substance: PROCHLORPERAZINE MALEATE
     Route: 048
  20. VITAMIN B12 [Concomitant]
     Active Substance: CYANOCOBALAMIN
     Dosage: 100 MCG
     Route: 048
     Dates: start: 20160927
  21. GABAPENTIN [Concomitant]
     Active Substance: GABAPENTIN
  22. CEPHALEXIN [Concomitant]
     Active Substance: CEPHALEXIN

REACTIONS (6)
  - Oesophageal ulcer haemorrhage [Unknown]
  - Vascular rupture [Unknown]
  - Rash [Unknown]
  - Herpes zoster [Unknown]
  - Swelling [Unknown]
  - Hepatic neoplasm [Unknown]
